FAERS Safety Report 6089952-4 (Version None)
Quarter: 2009Q1

REPORT INFORMATION
  Report Type: 
  Country: None (occurrence: None)
  Receive Date: 20090220
  Receipt Date: 20090209
  Transmission Date: 20090719
  Serious: Yes (Hospitalization)
  Sender: FDA-Public Use
  Company Number: 236647J08USA

PATIENT
  Age: 28 Year
  Sex: Female
  Weight: 59 kg

DRUGS (6)
  1. REBIF [Suspect]
     Indication: MULTIPLE SCLEROSIS
     Dosage: 44 MCG, 3 IN 1 WEEKS, SUBCUTANEOUS; 44 MCG, 3 IN 1 WEKS, SUBCUTANEOUS
     Route: 058
     Dates: start: 20061117, end: 20070901
  2. REBIF [Suspect]
     Indication: MULTIPLE SCLEROSIS
     Dosage: 44 MCG, 3 IN 1 WEEKS, SUBCUTANEOUS; 44 MCG, 3 IN 1 WEKS, SUBCUTANEOUS
     Route: 058
     Dates: start: 20080201
  3. KEPPRA [Suspect]
     Indication: CONVULSION
  4. PROVIGIL [Suspect]
     Indication: FATIGUE
  5. CARBATROL [Suspect]
     Indication: CONVULSION
  6. IBUPROFEN [Concomitant]

REACTIONS (6)
  - CONDITION AGGRAVATED [None]
  - DEPRESSION [None]
  - FAMILY STRESS [None]
  - MULTIPLE DRUG OVERDOSE [None]
  - SOCIAL PROBLEM [None]
  - SUICIDE ATTEMPT [None]
